FAERS Safety Report 6246834-2 (Version None)
Quarter: 2009Q2

REPORT INFORMATION
  Report Type: 
  Country: None (occurrence: None)
  Receive Date: 20090624
  Receipt Date: 20090624
  Transmission Date: 20091009
  Serious: Yes (Hospitalization)
  Sender: FDA-Public Use
  Company Number: None

PATIENT
  Sex: Male
  Weight: 81.6 kg

DRUGS (1)
  1. CYTARABINE [Suspect]
     Dosage: 6.1 G
     Dates: end: 20090523

REACTIONS (5)
  - BLOOD PRESSURE DECREASED [None]
  - HYPOVOLAEMIC SHOCK [None]
  - NEUTROPENIA [None]
  - SEPTIC SHOCK [None]
  - THROMBOCYTOPENIA [None]
